FAERS Safety Report 6814649-X (Version None)
Quarter: 2010Q3

REPORT INFORMATION
  Report Type: 
  Country: None (occurrence: None)
  Receive Date: 20100702
  Receipt Date: 20100623
  Transmission Date: 20110219
  Serious: Yes (Hospitalization, Other)
  Sender: FDA-Public Use
  Company Number: US-PFIZER INC-2010078598

PATIENT
  Age: 65 Year
  Sex: Female
  Weight: 83.91 kg

DRUGS (2)
  1. SUNITINIB MALATE [Suspect]
     Indication: ENDOMETRIAL CANCER
     Dosage: 50 MG, 1X/DAY
     Route: 048
     Dates: start: 20100322, end: 20100527
  2. HYDROXYCHLOROQUINE [Suspect]
     Indication: ENDOMETRIAL CANCER
     Dosage: 200 MG, 1X/DAY
     Route: 048
     Dates: start: 20100325, end: 20100608

REACTIONS (9)
  - ABDOMINAL PAIN [None]
  - BLOOD AMYLASE INCREASED [None]
  - DYSGEUSIA [None]
  - DYSPNOEA [None]
  - FATIGUE [None]
  - GAIT DISTURBANCE [None]
  - LIPASE INCREASED [None]
  - MUSCULAR WEAKNESS [None]
  - SMALL INTESTINAL OBSTRUCTION [None]
